FAERS Safety Report 8950203 (Version 2)
Quarter: 2013Q4

REPORT INFORMATION
  Report Type: Spontaneous
  Country: US (occurrence: US)
  Receive Date: 20121205
  Receipt Date: 20131007
  Transmission Date: 20140711
  Serious: Yes (Other)
  Sender: FDA-Public Use
  Company Number: US-ASTELLAS-2009002441

PATIENT
  Sex: Female

DRUGS (3)
  1. TARCEVA [Suspect]
     Indication: NON-SMALL CELL LUNG CANCER
     Dosage: 150 MG, UID/QD
     Route: 048
     Dates: start: 2005
  2. CLONAZEPAM [Concomitant]
     Indication: PRODUCT USED FOR UNKNOWN INDICATION
     Dosage: UNK
     Route: 065
  3. NORTRIPTYLINE                      /00006502/ [Concomitant]
     Indication: ANXIETY
     Dosage: UNK
     Route: 065

REACTIONS (20)
  - Drug dependence [Unknown]
  - Bone lesion [Unknown]
  - Wound secretion [Not Recovered/Not Resolved]
  - Wound complication [Unknown]
  - Thermohyperaesthesia [Not Recovered/Not Resolved]
  - Wound [Not Recovered/Not Resolved]
  - Drug effect decreased [Not Recovered/Not Resolved]
  - Skin lesion [Unknown]
  - Onycholysis [Unknown]
  - Rash pruritic [Not Recovered/Not Resolved]
  - Erythema [Not Recovered/Not Resolved]
  - Onychomadesis [Recovering/Resolving]
  - Nasopharyngitis [Unknown]
  - Nail growth abnormal [Unknown]
  - Hair growth abnormal [Unknown]
  - Nail discolouration [Unknown]
  - Lacrimation increased [Unknown]
  - Rash pustular [Unknown]
  - Epistaxis [Not Recovered/Not Resolved]
  - Rash erythematous [Not Recovered/Not Resolved]
